FAERS Safety Report 4899918-5 (Version None)
Quarter: 2006Q1

REPORT INFORMATION
  Report Type: 
  Country: None (occurrence: None)
  Receive Date: 20060118
  Receipt Date: 20050608
  Transmission Date: 20060701
  Serious: No
  Sender: FDA-Public Use
  Company Number: 2005001075

PATIENT
  Sex: Female

DRUGS (8)
  1. TARCEVA [Suspect]
     Indication: LUNG NEOPLASM MALIGNANT
     Dosage: 150 MG (QD), ORAL
     Route: 048
     Dates: start: 20050517
  2. XOPENEX [Concomitant]
  3. IPRATROPIUM BROMIDE [Concomitant]
  4. WARFARIN SODIUM [Concomitant]
  5. PREDNISONE TAB [Concomitant]
  6. ADVAIR DISKUS 100/50 [Concomitant]
  7. ATIVAN [Concomitant]
  8. COMPAZINE [Concomitant]

REACTIONS (6)
  - DECREASED APPETITE [None]
  - DYSPHONIA [None]
  - EYE DISCHARGE [None]
  - HYPERAESTHESIA [None]
  - NAUSEA [None]
  - WEIGHT DECREASED [None]
